FAERS Safety Report 16655266 (Version 1)
Quarter: 2019Q3

REPORT INFORMATION
  Report Type: Spontaneous
  Country: IT (occurrence: IT)
  Receive Date: 20190801
  Receipt Date: 20190801
  Transmission Date: 20191004
  Serious: Yes (Life-Threatening)
  Sender: FDA-Public Use
  Company Number: IT-TEVA-2019-IT-1085845

PATIENT
  Age: 58 Year
  Sex: Male
  Weight: 90 kg

DRUGS (2)
  1. CEFEPIME [Suspect]
     Active Substance: CEFEPIME HYDROCHLORIDE
     Indication: SEPSIS
     Dosage: 4 GRAM DAILY;
     Route: 042
     Dates: start: 20190626, end: 20190701
  2. OLANZAPINE. [Suspect]
     Active Substance: OLANZAPINE
     Indication: FEELING JITTERY
     Dosage: 5 MILLIGRAM DAILY;
     Route: 048
     Dates: start: 20190621, end: 20190703

REACTIONS (1)
  - Leukopenia [Recovered/Resolved]

NARRATIVE: CASE EVENT DATE: 20190628
